FAERS Safety Report 5649795-X (Version None)
Quarter: 2008Q1

REPORT INFORMATION
  Report Type: 
  Country: None (occurrence: None)
  Receive Date: 20080304
  Receipt Date: 20080221
  Transmission Date: 20080703
  Serious: Yes (Other)
  Sender: FDA-Public Use
  Company Number: US-PFIZER INC-2008017652

PATIENT
  Sex: Female
  Weight: 68 kg

DRUGS (3)
  1. CHANTIX [Suspect]
     Indication: SMOKING CESSATION THERAPY
     Dates: start: 20071001, end: 20071208
  2. LIPITOR [Suspect]
     Indication: BLOOD CHOLESTEROL INCREASED
     Dosage: TEXT:DAILY EVERY DAY
     Dates: start: 20070901, end: 20080103
  3. LEVOTHYROXINE SODIUM [Concomitant]

REACTIONS (3)
  - AGGRESSION [None]
  - DEPRESSION [None]
  - MEMORY IMPAIRMENT [None]
